FAERS Safety Report 4586921-8 (Version None)
Quarter: 2005Q1

REPORT INFORMATION
  Report Type: 
  Country: None (occurrence: None)
  Receive Date: 20050215
  Receipt Date: 20050215
  Transmission Date: 20050727
  Serious: Yes (Other)
  Sender: FDA-Public Use
  Company Number: None

PATIENT
  Age: 68 Year
  Sex: Male
  Weight: 104.3273 kg

DRUGS (1)
  1. LEVAQUIN [Suspect]
     Indication: PROSTATIC SPECIFIC ANTIGEN INCREASED
     Dosage: DAILY
     Dates: start: 19961217, end: 19961224

REACTIONS (3)
  - DIFFICULTY IN WALKING [None]
  - PAIN IN EXTREMITY [None]
  - TENDONITIS [None]
